FAERS Safety Report 23712876 (Version 1)
Quarter: 2024Q2

REPORT INFORMATION
  Report Type: Spontaneous
  Country: PL (occurrence: PL)
  Receive Date: 20240405
  Receipt Date: 20240405
  Transmission Date: 20240715
  Serious: Yes (Other)
  Sender: FDA-Public Use
  Company Number: None

PATIENT
  Age: 47 Year
  Sex: Male
  Weight: 115 kg

DRUGS (4)
  1. BEVACIZUMAB [Suspect]
     Active Substance: BEVACIZUMAB
     Indication: Colon cancer
     Dosage: 1000 MG
     Route: 042
     Dates: start: 20230627, end: 20230627
  2. OXALIPLATIN [Suspect]
     Active Substance: OXALIPLATIN
     Indication: Colon cancer
     Dosage: 170 MG
     Route: 042
     Dates: start: 20230627, end: 20230627
  3. FLUOROURACIL [Suspect]
     Active Substance: FLUOROURACIL
     Indication: Colon cancer
     Dosage: 1200 MG
     Route: 042
     Dates: start: 20230627, end: 20230629
  4. FLUOROURACIL [Suspect]
     Active Substance: FLUOROURACIL
     Dosage: 800 MG
     Route: 042
     Dates: start: 20230627, end: 20230628

REACTIONS (2)
  - Thrombocytopenia [Unknown]
  - Neutropenia [Unknown]
